FAERS Safety Report 18447344 (Version 10)
Quarter: 2025Q3

REPORT INFORMATION
  Report Type: Report from Study
  Country: EU (occurrence: EU)
  Receive Date: 20201030
  Receipt Date: 20250904
  Transmission Date: 20251021
  Serious: Yes (Death, Hospitalization, Other)
  Sender: JOHNSON AND JOHNSON
  Company Number: EU-ACTELION-A-CH2018-182053

PATIENT
  Age: 79 Year
  Sex: Female
  Weight: 69 kg

DRUGS (40)
  1. OPSUMIT [Suspect]
     Active Substance: MACITENTAN
     Indication: Pulmonary arterial hypertension
     Dosage: 10 MG, QD
     Route: 048
     Dates: start: 20170920, end: 20210129
  2. UPTRAVI [Suspect]
     Active Substance: SELEXIPAG
     Indication: Pulmonary arterial hypertension
     Dosage: 800 MCG, QD
     Route: 048
     Dates: start: 20180909, end: 20180916
  3. UPTRAVI [Suspect]
     Active Substance: SELEXIPAG
     Dosage: 400 MCG, QD
     Route: 048
     Dates: start: 20180902, end: 20180909
  4. UPTRAVI [Suspect]
     Active Substance: SELEXIPAG
     Dosage: 1200 MCG, QD
     Route: 048
     Dates: start: 20180916, end: 20180929
  5. UPTRAVI [Suspect]
     Active Substance: SELEXIPAG
     Dosage: 800 MCG, BID
     Route: 048
     Dates: start: 20180929, end: 20181005
  6. UPTRAVI [Suspect]
     Active Substance: SELEXIPAG
     Route: 048
     Dates: start: 20181005, end: 20210103
  7. UPTRAVI [Suspect]
     Active Substance: SELEXIPAG
     Route: 048
     Dates: start: 20210103, end: 20210110
  8. UPTRAVI [Suspect]
     Active Substance: SELEXIPAG
     Route: 048
     Dates: start: 20210110, end: 20210129
  9. UPTRAVI [Suspect]
     Active Substance: SELEXIPAG
     Route: 048
     Dates: start: 20180929, end: 20181005
  10. SILDENAFIL [Suspect]
     Active Substance: SILDENAFIL
     Indication: Pulmonary arterial hypertension
     Route: 048
     Dates: start: 20171206, end: 20180130
  11. FUROSEMIDE [Concomitant]
     Active Substance: FUROSEMIDE
     Indication: Dyspnoea
     Route: 042
     Dates: start: 20201007, end: 20201013
  12. FUROSEMIDE [Concomitant]
     Active Substance: FUROSEMIDE
     Indication: Pleural effusion
     Route: 042
     Dates: start: 20191206, end: 20191209
  13. FUROSEMIDE [Concomitant]
     Active Substance: FUROSEMIDE
     Dosage: 80 MG, QD
     Route: 048
  14. FUROSEMIDE [Concomitant]
     Active Substance: FUROSEMIDE
     Dosage: UNK, BID
     Route: 048
  15. OXYGEN [Concomitant]
     Active Substance: OXYGEN
     Indication: Pulmonary arterial hypertension
     Route: 055
     Dates: start: 20170602
  16. CANDESARTAN CILEXETIL\HYDROCHLOROTHIAZIDE [Concomitant]
     Active Substance: CANDESARTAN CILEXETIL\HYDROCHLOROTHIAZIDE
     Indication: Product used for unknown indication
     Route: 048
     Dates: start: 201706, end: 2018
  17. BARNIDIPINE [Concomitant]
     Active Substance: BARNIDIPINE
     Indication: Product used for unknown indication
     Route: 048
     Dates: start: 201706, end: 20181114
  18. BARNIDIPINE [Concomitant]
     Active Substance: BARNIDIPINE
     Route: 048
     Dates: start: 20181213, end: 20201008
  19. CETOMACROGOL;PARAFFIN, LIQUID;PROPYLENE GLYCOL;WHITE SOFT PARAFFIN [Concomitant]
     Indication: Product used for unknown indication
     Route: 061
     Dates: start: 201706
  20. TIOTROPIUM [Concomitant]
     Active Substance: TIOTROPIUM
     Indication: Product used for unknown indication
     Route: 055
     Dates: start: 20170828
  21. PRAVASTATIN [Concomitant]
     Active Substance: PRAVASTATIN
     Indication: Product used for unknown indication
     Route: 048
     Dates: start: 201706
  22. PANTOPRAZOLE [Concomitant]
     Active Substance: PANTOPRAZOLE
     Indication: Product used for unknown indication
     Route: 048
     Dates: start: 201706
  23. MOMETASONE [Concomitant]
     Active Substance: MOMETASONE
     Indication: Product used for unknown indication
     Route: 055
     Dates: start: 201706
  24. METOPROLOL [Concomitant]
     Active Substance: METOPROLOL
     Indication: Product used for unknown indication
     Route: 048
     Dates: start: 201706, end: 20191213
  25. LEVOCETIRIZINE [Concomitant]
     Active Substance: LEVOCETIRIZINE
     Indication: Product used for unknown indication
     Route: 048
     Dates: start: 201706
  26. FLECAINIDE [Concomitant]
     Active Substance: FLECAINIDE
     Indication: Product used for unknown indication
     Route: 048
     Dates: start: 201706, end: 20191213
  27. CHOLECALCIFEROL [Concomitant]
     Active Substance: CHOLECALCIFEROL
     Indication: Product used for unknown indication
     Route: 048
     Dates: start: 201706
  28. ACENOCOUMAROL [Concomitant]
     Active Substance: ACENOCOUMAROL
     Indication: Product used for unknown indication
     Route: 048
     Dates: start: 201706
  29. ADCIRCA [Concomitant]
     Active Substance: TADALAFIL
     Indication: Pulmonary arterial hypertension
     Dosage: 40 MG, QD
     Route: 048
     Dates: start: 20180207
  30. CETIRIZINE HYDROCHLORIDE [Concomitant]
     Active Substance: CETIRIZINE HYDROCHLORIDE
     Indication: Product used for unknown indication
     Route: 048
     Dates: start: 20191207, end: 20191213
  31. NIFEDIPINE [Concomitant]
     Active Substance: NIFEDIPINE
     Indication: Product used for unknown indication
     Route: 048
     Dates: start: 20191207, end: 20191217
  32. FLUTICASON [FLUTICASONE PROPIONATE] [Concomitant]
     Indication: Product used for unknown indication
     Route: 050
     Dates: start: 20191207, end: 20191217
  33. ACETAMINOPHEN [Concomitant]
     Active Substance: ACETAMINOPHEN
     Indication: Pain
     Route: 048
     Dates: start: 20201010, end: 20201011
  34. ONDANSETRON [Concomitant]
     Active Substance: ONDANSETRON
     Indication: Pruritus
     Dates: start: 20210129, end: 20210130
  35. ACETYLCYSTEINE [Concomitant]
     Active Substance: ACETYLCYSTEINE
     Indication: Product used for unknown indication
     Dates: start: 20210127, end: 20210128
  36. ACENOCOUMAROL [Concomitant]
     Active Substance: ACENOCOUMAROL
     Indication: Product used for unknown indication
     Route: 048
     Dates: start: 201706, end: 20210129
  37. MORPHINE [Concomitant]
     Active Substance: MORPHINE
     Indication: Dyspnoea
     Route: 058
     Dates: start: 20210126, end: 20210130
  38. ASPIRIN [Concomitant]
     Active Substance: ASPIRIN
     Indication: Dry eye
     Dates: start: 20200904, end: 20210130
  39. PRAVASTATIN [Concomitant]
     Active Substance: PRAVASTATIN
     Indication: Product used for unknown indication
     Dates: start: 201706, end: 20210129
  40. ALBUTEROL [Concomitant]
     Active Substance: ALBUTEROL
     Indication: Product used for unknown indication

REACTIONS (26)
  - Pulmonary arterial hypertension [Fatal]
  - Condition aggravated [Fatal]
  - Pulmonary veno-occlusive disease [Unknown]
  - Disease progression [Not Recovered/Not Resolved]
  - Hypoxia [Recovering/Resolving]
  - Cardiac failure [Recovering/Resolving]
  - Pleural effusion [Recovering/Resolving]
  - Hypotension [Recovering/Resolving]
  - Atrioventricular block complete [Recovering/Resolving]
  - Right ventricular failure [Not Recovered/Not Resolved]
  - Dyspnoea [Recovering/Resolving]
  - Cardiac failure [Unknown]
  - Renal impairment [Recovering/Resolving]
  - Weight decreased [Recovered/Resolved with Sequelae]
  - Headache [Recovered/Resolved]
  - Creatinine renal clearance decreased [Not Recovered/Not Resolved]
  - Pulmonary oedema [Unknown]
  - Haematuria [Unknown]
  - Constipation [Recovered/Resolved]
  - Peripheral swelling [Unknown]
  - Swelling face [Unknown]
  - Concomitant disease aggravated [Recovering/Resolving]
  - Decreased appetite [Unknown]
  - Dysphagia [Unknown]
  - Dry eye [Unknown]
  - Rhinorrhoea [Unknown]

NARRATIVE: CASE EVENT DATE: 20180906
